FAERS Safety Report 20858213 (Version 8)
Quarter: 2022Q3

REPORT INFORMATION
  Report Type: Report from Study
  Country: EC (occurrence: EC)
  Receive Date: 20220521
  Receipt Date: 20220801
  Transmission Date: 20221027
  Serious: Yes (Death, Hospitalization, Other)
  Sender: FDA-Public Use
  Company Number: EC-NOVARTISPH-NVSC2022EC115470

PATIENT
  Age: 32 Year
  Sex: Female

DRUGS (4)
  1. KISQALI [Suspect]
     Active Substance: RIBOCICLIB
     Indication: Breast cancer
     Dosage: 600 MG, QD
     Route: 048
     Dates: start: 20220321, end: 20220527
  2. KISQALI [Suspect]
     Active Substance: RIBOCICLIB
     Dosage: 600 MG, QD
     Route: 048
     Dates: start: 20220601
  3. KISQALI [Suspect]
     Active Substance: RIBOCICLIB
     Dosage: 600 MG, QD
     Route: 048
     Dates: start: 20220701
  4. KISQALI [Suspect]
     Active Substance: RIBOCICLIB
     Dosage: 600 MG, QD
     Route: 048
     Dates: start: 20220321

REACTIONS (23)
  - Death [Fatal]
  - Depression [Unknown]
  - Pleural effusion [Not Recovered/Not Resolved]
  - Decreased immune responsiveness [Unknown]
  - Face oedema [Unknown]
  - Leprosy [Unknown]
  - Tumour pain [Recovering/Resolving]
  - Toxicity to various agents [Unknown]
  - Pneumonitis [Recovering/Resolving]
  - Neuropathy peripheral [Recovering/Resolving]
  - Fluid retention [Unknown]
  - Gait disturbance [Recovering/Resolving]
  - Arthralgia [Recovering/Resolving]
  - Fall [Recovering/Resolving]
  - Spinal pain [Recovering/Resolving]
  - Pain in extremity [Not Recovered/Not Resolved]
  - Irritability [Recovering/Resolving]
  - Eye pain [Not Recovered/Not Resolved]
  - Chills [Not Recovered/Not Resolved]
  - Peripheral swelling [Not Recovered/Not Resolved]
  - Hepatic enzyme increased [Recovered/Resolved]
  - Decreased appetite [Not Recovered/Not Resolved]
  - Oedema peripheral [Recovering/Resolving]

NARRATIVE: CASE EVENT DATE: 20220505
